FAERS Safety Report 11275501 (Version 3)
Quarter: 2015Q3

REPORT INFORMATION
  Report Type: Spontaneous
  Country: US (occurrence: US)
  Receive Date: 20150716
  Receipt Date: 20150925
  Transmission Date: 20151125
  Serious: Yes (Life-Threatening, Hospitalization)
  Sender: FDA-Public Use
  Company Number: US-JNJFOC-20150706237

PATIENT
  Age: 63 Year
  Sex: Male
  Weight: 103.87 kg

DRUGS (17)
  1. INVOKANA [Suspect]
     Active Substance: CANAGLIFLOZIN
     Indication: TYPE 2 DIABETES MELLITUS
     Route: 048
     Dates: start: 20150527, end: 20150602
  2. DIFLUCAN [Concomitant]
     Active Substance: FLUCONAZOLE
     Indication: FUNGAL INFECTION
  3. NOVOLIN R [Concomitant]
     Active Substance: INSULIN HUMAN
     Route: 065
  4. NOVOLIN N [Concomitant]
     Active Substance: INSULIN HUMAN
     Route: 065
  5. ASTHALIN [Concomitant]
     Active Substance: ALBUTEROL
     Dosage: AS NECESSARY
     Route: 065
     Dates: start: 20150327
  6. OXYCODONE [Concomitant]
     Active Substance: OXYCODONE
     Route: 065
     Dates: start: 20150327
  7. DICYCLOMINE [Concomitant]
     Active Substance: DICYCLOMINE HYDROCHLORIDE
     Route: 065
     Dates: start: 20150616
  8. RAMIPRIL. [Concomitant]
     Active Substance: RAMIPRIL
     Route: 065
     Dates: start: 20150712
  9. TRIAMCINOLONE CREAM [Concomitant]
     Route: 065
     Dates: start: 20150327
  10. CIALIS [Concomitant]
     Active Substance: TADALAFIL
     Dosage: AS NECESSARY
     Route: 065
     Dates: start: 20150327
  11. ALTACE [Concomitant]
     Active Substance: RAMIPRIL
     Route: 065
     Dates: start: 20150327
  12. NEURONTIN [Concomitant]
     Active Substance: GABAPENTIN
     Route: 065
     Dates: start: 20150327
  13. OMEPRAZOLE. [Concomitant]
     Active Substance: OMEPRAZOLE
     Route: 065
     Dates: start: 20150327
  14. TESTOSTERONE. [Concomitant]
     Active Substance: TESTOSTERONE
     Route: 065
     Dates: start: 20150327
  15. NITRO [Concomitant]
     Active Substance: NITROGLYCERIN
     Dosage: AS NECESSARY
     Route: 065
     Dates: start: 20150327
  16. METFORMIN [Concomitant]
     Active Substance: METFORMIN HYDROCHLORIDE
     Route: 065
  17. NAPROXEN. [Concomitant]
     Active Substance: NAPROXEN
     Dosage: AS NECESSARY
     Route: 065
     Dates: start: 20150327

REACTIONS (3)
  - Acute kidney injury [Recovered/Resolved]
  - Acute hepatic failure [Recovered/Resolved]
  - Coma [Recovered/Resolved]

NARRATIVE: CASE EVENT DATE: 20150602
